FAERS Safety Report 5284166-X (Version None)
Quarter: 2007Q2

REPORT INFORMATION
  Report Type: 
  Country: None (occurrence: None)
  Receive Date: 20070403
  Receipt Date: 20070323
  Transmission Date: 20071010
  Serious: Yes (Hospitalization, Other)
  Sender: FDA-Public Use
  Company Number: DE-JNJFOC-20070201243

PATIENT
  Sex: Female
  Weight: 46 kg

DRUGS (5)
  1. CONCERTA [Suspect]
     Route: 048
  2. CONCERTA [Suspect]
     Indication: DECREASED ACTIVITY
     Route: 048
  3. JODETTEN [Concomitant]
     Route: 048
  4. PETADOLEX [Concomitant]
     Indication: VERTIGO
     Route: 048
  5. PETADOLEX [Concomitant]
     Indication: MIGRAINE
     Route: 048

REACTIONS (3)
  - BLOOD PRESSURE DECREASED [None]
  - HYPERVENTILATION [None]
  - SYNCOPE [None]
